FAERS Safety Report 21365490 (Version 1)
Quarter: 2022Q3

REPORT INFORMATION
  Report Type: Spontaneous
  Country: US (occurrence: None)
  Receive Date: 20220922
  Receipt Date: 20220922
  Transmission Date: 20221027
  Serious: Yes (Hospitalization)
  Sender: FDA-Public Use
  Company Number: None

PATIENT
  Sex: Female

DRUGS (25)
  1. COSENTYX [Suspect]
     Active Substance: SECUKINUMAB
     Indication: Ankylosing spondylitis
  2. COSENTYX [Suspect]
     Active Substance: SECUKINUMAB
     Indication: Spinal disorder
  3. ALPRAZOLAM TAB [Concomitant]
  4. CIMZIA PREFL KIT [Concomitant]
  5. CYCLOBENZAPR TAB [Concomitant]
  6. CYCLOPENTOL SOL [Concomitant]
  7. DICLOFENAC [Concomitant]
     Active Substance: DICLOFENAC
  8. DULOXETINE HYDROCHLORIDE [Concomitant]
     Active Substance: DULOXETINE HYDROCHLORIDE
  9. ENBREL SRCLK INJ [Concomitant]
  10. EPINEPHRINE INJ [Concomitant]
  11. FOLIC ACID TAB [Concomitant]
  12. ACETAMINOPHEN\HYDROCODONE [Concomitant]
     Active Substance: ACETAMINOPHEN\HYDROCODONE
  13. LAMOTRIGINE [Concomitant]
     Active Substance: LAMOTRIGINE
  14. LAMOTRIGINE [Concomitant]
     Active Substance: LAMOTRIGINE
  15. LEVOTHYROXIN TAB [Concomitant]
  16. MAGNESIUM-OX TAB [Concomitant]
  17. OXYCODONE TAB [Concomitant]
  18. PREDNISOLONE SUS [Concomitant]
  19. PREDNISONE [Concomitant]
     Active Substance: PREDNISONE
  20. SULINDAC TAB [Concomitant]
  21. SUMATRIPTAIN TAB [Concomitant]
  22. TRAMADOL HCL TAB [Concomitant]
  23. VENLAFAXINE TAB [Concomitant]
  24. VITAMIN B-2 [Concomitant]
  25. VITAMIN D CAP [Concomitant]

REACTIONS (3)
  - Therapy interrupted [None]
  - Condition aggravated [None]
  - Surgery [None]
